FAERS Safety Report 21395563 (Version 1)
Quarter: 2022Q3

REPORT INFORMATION
  Report Type: Spontaneous
  Country: GB (occurrence: GB)
  Receive Date: 20220930
  Receipt Date: 20220930
  Transmission Date: 20221027
  Serious: Yes (Disabling)
  Sender: FDA-Public Use
  Company Number: GB-SUN PHARMACEUTICAL INDUSTRIES LTD-2022RR-356905

PATIENT
  Age: 64 Year
  Sex: Female
  Weight: 95 kg

DRUGS (8)
  1. ATORVASTATIN [Suspect]
     Active Substance: ATORVASTATIN
     Indication: Ill-defined disorder
     Dosage: UNK
     Route: 065
     Dates: start: 20220915
  2. AMLODIPINE [Concomitant]
     Active Substance: AMLODIPINE BESYLATE
     Indication: Ill-defined disorder
     Dosage: TAKE HALF DAILY ***PLEASE USE POD FOR BP CHECK ...
     Route: 065
     Dates: start: 20210826
  3. ATORVASTATIN [Concomitant]
     Active Substance: ATORVASTATIN
     Indication: Ill-defined disorder
     Dosage: TAKE ONE AT NIGHT. IF THIS IS THE FIRST YEAR OF...
     Route: 065
     Dates: start: 20220811, end: 20220915
  4. ESTRADIOL [Concomitant]
     Active Substance: ESTRADIOL
     Indication: Ill-defined disorder
     Dosage: INSERT ONE PESSARY TWICE A WEEK
     Route: 065
     Dates: start: 20211215
  5. NAPROXEN [Concomitant]
     Active Substance: NAPROXEN
     Indication: Ill-defined disorder
     Dosage: ONE TO BE TAKEN TWICE DAILY WHEN REQUIRED FOR P...
     Route: 065
     Dates: start: 20210826
  6. OMEPRAZOLE [Concomitant]
     Active Substance: OMEPRAZOLE
     Indication: Ill-defined disorder
     Dosage: TAKE ONE DAILY WHEN TAKING NAPROXEN / FOR INCRE...
     Route: 065
     Dates: start: 20210826
  7. RAMIPRIL [Concomitant]
     Active Substance: RAMIPRIL
     Indication: Ill-defined disorder
     Dosage: TAKE ONE DAILY
     Route: 065
     Dates: start: 20210826
  8. ROSUVASTATIN [Concomitant]
     Active Substance: ROSUVASTATIN
     Indication: Ill-defined disorder
     Dosage: TAKE ONE DAILY
     Route: 065
     Dates: start: 20220915

REACTIONS (1)
  - Adverse drug reaction [Recovered/Resolved]

NARRATIVE: CASE EVENT DATE: 20220915
